FAERS Safety Report 4628568-0 (Version None)
Quarter: 2005Q2

REPORT INFORMATION
  Report Type: 
  Country: None (occurrence: None)
  Receive Date: 20050404
  Receipt Date: 20050321
  Transmission Date: 20051028
  Serious: No
  Sender: FDA-Public Use
  Company Number: 2005GB00599

PATIENT
  Age: 33 Year
  Sex: Female

DRUGS (6)
  1. MARCAINE [Suspect]
     Indication: CHOLECYSTECTOMY
     Dosage: 80 ML ONCE
     Dates: start: 20050216
  2. MORPHINE [Concomitant]
  3. CYCLIZINE [Concomitant]
  4. PARACETAMOL [Concomitant]
  5. TINZAPARIN [Concomitant]
  6. DF118 [Concomitant]

REACTIONS (2)
  - ANAEMIA [None]
  - INTRAVASCULAR HAEMOLYSIS [None]
